FAERS Safety Report 24045986 (Version 2)
Quarter: 2024Q3

REPORT INFORMATION
  Report Type: Report from Study
  Country: US (occurrence: US)
  Receive Date: 20240703
  Receipt Date: 20240710
  Transmission Date: 20241017
  Serious: Yes (Hospitalization, Other)
  Sender: UCB
  Company Number: US-UCBSA-2024024290

PATIENT
  Sex: Female

DRUGS (6)
  1. BIMEKIZUMAB [Suspect]
     Active Substance: BIMEKIZUMAB
     Indication: Psoriasis
     Dosage: 320 MILLIGRAM, EV 4 WEEKS
     Route: 058
     Dates: start: 20240412, end: 2024
  2. BIMEKIZUMAB [Suspect]
     Active Substance: BIMEKIZUMAB
     Dosage: 320 MILLIGRAM, EV 4 WEEKS
     Route: 058
     Dates: start: 20240510, end: 20240511
  3. ENBREL [Concomitant]
     Active Substance: BENZYL ALCOHOL\ETANERCEPT
     Indication: Product used for unknown indication
     Dosage: 50 MILLIGRAM PER MILLILITRE
     Route: 058
  4. ENBREL [Concomitant]
     Active Substance: BENZYL ALCOHOL\ETANERCEPT
     Indication: Product used for unknown indication
     Dosage: 50 MILLIGRAM TWICE A WEEK FOR 3 MONTHS THEN AFTER 3 MONTHS 50 MG ONCE WEEKLY
     Route: 058
  5. FLUCONAZOLE [Concomitant]
     Active Substance: FLUCONAZOLE
     Indication: Product used for unknown indication
     Dosage: 200 MG IN SINGLE DOSE ON ONE DAY, FOLLOWED BY 100 MG ONCE A DAY FOR 3 WEEKS
     Route: 048
  6. NYSTATIN [Concomitant]
     Active Substance: NYSTATIN
     Indication: Product used for unknown indication
     Dosage: 5 MILLILITER AS LONG AS POSSIBLE AND SPIT OUT 3-4 TIMES DAILY
     Route: 048

REACTIONS (9)
  - Oral candidiasis [Recovering/Resolving]
  - Oesophagitis [Recovering/Resolving]
  - Oesophageal pain [Recovering/Resolving]
  - Oesophageal disorder [Recovering/Resolving]
  - Loss of consciousness [Recovering/Resolving]
  - Anaphylactic shock [Unknown]
  - Oesophageal candidiasis [Unknown]
  - Lacrimation increased [Not Recovered/Not Resolved]
  - Fatigue [Not Recovered/Not Resolved]

NARRATIVE: CASE EVENT DATE: 20240101
